FAERS Safety Report 10463726 (Version 1)
Quarter: 2014Q3

REPORT INFORMATION
  Report Type: Spontaneous
  Country: GB (occurrence: GB)
  Receive Date: 20140919
  Receipt Date: 20140919
  Transmission Date: 20150326
  Serious: Yes (Hospitalization)
  Sender: FDA-Public Use
  Company Number: PHHY2014GB118573

PATIENT
  Age: 47 Year
  Sex: Female

DRUGS (5)
  1. ALENDRONAT [Concomitant]
     Active Substance: ALENDRONATE SODIUM
     Indication: HYPERCALCAEMIA
     Dosage: 10 MG, (FROM DAY 99)
     Route: 048
  2. PAMIDRONATE [Suspect]
     Active Substance: PAMIDRONATE DISODIUM
     Dosage: 60 MG, FIVE DOSES
  3. LANREOTIDA [Concomitant]
     Indication: HYPERCALCAEMIA
     Dosage: 30 MG (FORTNIGHTLY AS A SINGLE DOSE FROM DAY 105))
  4. OCTREOTIDE [Suspect]
     Active Substance: OCTREOTIDE
     Indication: HYPERCALCAEMIA
     Dosage: 50 MG, TID ((50 MG THREE TIMES PER DAY FROM DAY 67, 100 MG THREE TIMES PER DAY FROM DAY 79, AND 20 M
  5. PAMIDRONATE [Suspect]
     Active Substance: PAMIDRONATE DISODIUM
     Indication: HYPERCALCAEMIA
     Dosage: 90 MG, ONE DOSE
     Route: 042

REACTIONS (2)
  - Blood calcium increased [Recovered/Resolved]
  - Drug ineffective [Unknown]
